FAERS Safety Report 9285335 (Version 1)
Quarter: 2013Q2

REPORT INFORMATION
  Report Type: Spontaneous
  Country: US (occurrence: US)
  Receive Date: 20130513
  Receipt Date: 20130513
  Transmission Date: 20140414
  Serious: Yes (Death)
  Sender: FDA-Public Use
  Company Number: US-BRISTOL-MYERS SQUIBB COMPANY-18862706

PATIENT
  Age: 29 Year
  Sex: Male
  Weight: 174.14 kg

DRUGS (7)
  1. ABILIFY [Suspect]
     Indication: BIPOLAR DISORDER
  2. RISPERIDONE [Suspect]
  3. CARBAMAZEPINE [Suspect]
     Dosage: 400 AM 500 PM
  4. FANAPT [Suspect]
     Dosage: 16 MG AM, 8 MG PM
  5. CLONIDINE [Suspect]
  6. LOVAZA [Suspect]
  7. VITAMINS [Suspect]

REACTIONS (1)
  - Death [Fatal]
